FAERS Safety Report 5825406-5 (Version None)
Quarter: 2008Q3

REPORT INFORMATION
  Report Type: 
  Country: None (occurrence: None)
  Receive Date: 20080725
  Receipt Date: 20080725
  Transmission Date: 20090109
  Serious: Yes (Death)
  Sender: FDA-Public Use
  Company Number: None

PATIENT
  Sex: Male

DRUGS (3)
  1. FLUDARABINE PHOSPHATE [Suspect]
     Indication: MYELODYSPLASTIC SYNDROME
     Dosage: 50 MG DAILY IV DRIP
     Route: 041
     Dates: start: 20060112, end: 20060116
  2. BUSULFAN [Suspect]
     Indication: MYELODYSPLASTIC SYNDROME
     Dosage: 262 MG DAILY IV DRIP
     Route: 041
     Dates: start: 20060113, end: 20060116
  3. CAMPATH [Concomitant]

REACTIONS (3)
  - EPSTEIN-BARR VIRUS ASSOCIATED LYMPHOPROLIFERATIVE DISORDER [None]
  - HEPATIC FAILURE [None]
  - HEPATIC INFECTION FUNGAL [None]
